FAERS Safety Report 9218255 (Version 2)
Quarter: 2013Q2

REPORT INFORMATION
  Report Type: Spontaneous
  Country: GR (occurrence: GR)
  Receive Date: 20130408
  Receipt Date: 20130409
  Transmission Date: 20140414
  Serious: Yes (Hospitalization, Other)
  Sender: FDA-Public Use
  Company Number: GR-ELI_LILLY_AND_COMPANY-GR201303008827

PATIENT
  Age: 33 Year
  Sex: Male

DRUGS (3)
  1. ZYPADHERA [Suspect]
     Indication: BIPOLAR I DISORDER
     Dosage: 405 MG, EVERY 15 DAYS
     Dates: start: 201302, end: 20130322
  2. ZYPREXA [Suspect]
     Indication: BIPOLAR I DISORDER
     Dosage: 20 MG, QD
     Route: 048
     Dates: start: 201302
  3. TRILEPTAL [Concomitant]
     Indication: BIPOLAR I DISORDER
     Dosage: UNK
     Route: 048

REACTIONS (6)
  - Dizziness [Recovered/Resolved]
  - Dysarthria [Recovered/Resolved]
  - Somnolence [Recovered/Resolved]
  - Ataxia [Recovered/Resolved]
  - Hallucination, visual [Recovered/Resolved]
  - Prescribed overdose [Unknown]
